FAERS Safety Report 23341653 (Version 1)
Quarter: 2023Q4

REPORT INFORMATION
  Report Type: Spontaneous
  Country: GB (occurrence: GB)
  Receive Date: 20231227
  Receipt Date: 20231227
  Transmission Date: 20240109
  Serious: Yes (Other)
  Sender: FDA-Public Use
  Company Number: None

PATIENT

DRUGS (2)
  1. ULIPRISTAL ACETATE [Suspect]
     Active Substance: ULIPRISTAL ACETATE
     Indication: Post coital contraception
     Route: 065
     Dates: start: 20231209
  2. OVEX [Concomitant]
     Active Substance: MEBENDAZOLE
     Indication: Prophylaxis
     Dates: start: 20231214

REACTIONS (2)
  - Heavy menstrual bleeding [Recovering/Resolving]
  - Menstrual clots [Recovering/Resolving]

NARRATIVE: CASE EVENT DATE: 20231216
